FAERS Safety Report 7900220-5 (Version None)
Quarter: 2011Q4

REPORT INFORMATION
  Report Type: 
  Country: None (occurrence: None)
  Receive Date: 20111104
  Receipt Date: 20111027
  Transmission Date: 20120403
  Serious: Yes (Hospitalization)
  Sender: FDA-Public Use
  Company Number: DSU-2011-08020

PATIENT
  Age: 88 Year
  Sex: Female
  Weight: 63.5036 kg

DRUGS (4)
  1. ATENOLOL [Concomitant]
  2. UNKNOWN ANTIBIOTIC (INGREDIENTS UNKNOWN) (ANTIBIOTICS) [Suspect]
     Indication: INFLUENZA
     Dosage: PER ORAL
     Route: 048
     Dates: start: 20110101, end: 20110101
  3. BENICAR [Suspect]
     Indication: HYPERTENSION
     Dosage: 20 MG (20 MG,QD), PER ORAL
     Route: 048
     Dates: end: 20110801
  4. HYDROCHLOROTHIAZIDE [Concomitant]

REACTIONS (3)
  - INFLUENZA [None]
  - DIZZINESS [None]
  - CLOSTRIDIAL INFECTION [None]
